FAERS Safety Report 6215404-4 (Version None)
Quarter: 2009Q2

REPORT INFORMATION
  Report Type: 
  Country: None (occurrence: None)
  Receive Date: 20090604
  Receipt Date: 20090603
  Transmission Date: 20091009
  Serious: Yes (Hospitalization)
  Sender: FDA-Public Use
  Company Number: FR-MERCK-0906FRA00011

PATIENT
  Age: 78 Year
  Sex: Female

DRUGS (5)
  1. MODURETIC 5-50 [Suspect]
     Route: 048
  2. AMLODIPINE BESYLATE [Concomitant]
     Route: 048
  3. SOTALOL HYDROCHLORIDE [Concomitant]
     Route: 048
  4. SIMVASTATIN [Concomitant]
     Route: 048
  5. PRAZEPAM [Concomitant]
     Route: 048

REACTIONS (2)
  - FALL [None]
  - HYPONATRAEMIA [None]
